FAERS Safety Report 5835956-3 (Version None)
Quarter: 2008Q3

REPORT INFORMATION
  Report Type: 
  Country: None (occurrence: None)
  Receive Date: 20080805
  Receipt Date: 20080403
  Transmission Date: 20090109
  Serious: Yes (Other)
  Sender: FDA-Public Use
  Company Number: 2008-02776

PATIENT

DRUGS (4)
  1. VELCADE [Suspect]
     Indication: MULTIPLE MYELOMA
     Dosage: 1.3 MG/M, INTRAVENOUS; 1 MG/M2, INTRAVENOUS
     Route: 042
  2. DOXORUBICIN HCL [Suspect]
     Indication: MULTIPLE MYELOMA
     Dosage: 30 MG/M2, INTRAVENOUS
     Route: 042
  3. DEXAMETHASONE TAB [Suspect]
     Indication: MULTIPLE MYELOMA
     Dosage: 20 MG, 40 MG
  4. THALIDOMIDE [Suspect]
     Indication: MULTIPLE MYELOMA
     Dosage: 100 MG

REACTIONS (1)
  - DISEASE PROGRESSION [None]
